FAERS Safety Report 9112775 (Version 1)
Quarter: 2013Q1

REPORT INFORMATION
  Report Type: Spontaneous
  Country: JP (occurrence: JP)
  Receive Date: 20130211
  Receipt Date: 20130211
  Transmission Date: 20140127
  Serious: Yes (Death, Hospitalization, Other)
  Sender: FDA-Public Use
  Company Number: JP-ELI_LILLY_AND_COMPANY-JP201302002021

PATIENT
  Sex: Male
  Weight: 56.4 kg

DRUGS (3)
  1. GEMZAR [Suspect]
     Indication: BLADDER CANCER
     Dosage: 1500 MG, UNK
     Route: 042
     Dates: start: 20091002, end: 20091030
  2. PACLITAXEL [Concomitant]
     Indication: BLADDER CANCER
     Dosage: 120 MG, UNK
     Route: 042
     Dates: start: 20091002, end: 20091030
  3. ZOMETA [Concomitant]
     Indication: METASTASES TO BONE
     Dosage: UNK
     Dates: start: 20090929, end: 20091229

REACTIONS (2)
  - Interstitial lung disease [Fatal]
  - Malignant neoplasm progression [Not Recovered/Not Resolved]
